FAERS Safety Report 5366067-1 (Version None)
Quarter: 2007Q2

REPORT INFORMATION
  Report Type: 
  Country: None (occurrence: None)
  Receive Date: 20070620
  Receipt Date: 20070611
  Transmission Date: 20071010
  Serious: Yes (Hospitalization)
  Sender: FDA-Public Use
  Company Number: 2007US001348

PATIENT
  Age: 70 Year
  Sex: Female

DRUGS (5)
  1. VESICARE [Suspect]
     Indication: DRUG USE FOR UNKNOWN INDICATION
     Dosage: 10 MG UNK ORAL
     Route: 048
     Dates: start: 20070429, end: 20070430
  2. PREMPRO [Concomitant]
  3. ESTROGENIC SUBSTANCE [Concomitant]
  4. CALCIUM (ASCORBIC ACID) [Concomitant]
  5. ASPIRIN [Concomitant]

REACTIONS (2)
  - CEREBROVASCULAR ACCIDENT [None]
  - VISION BLURRED [None]
